FAERS Safety Report 21003014 (Version 1)
Quarter: 2022Q2

REPORT INFORMATION
  Report Type: Spontaneous
  Country: US (occurrence: None)
  Receive Date: 20220623
  Receipt Date: 20220623
  Transmission Date: 20220721
  Serious: Yes (Other)
  Sender: FDA-Public Use
  Company Number: None

PATIENT
  Age: 41 Year
  Sex: Female
  Weight: 72.1 kg

DRUGS (1)
  1. BEBTELOVIMAB [Suspect]
     Active Substance: BEBTELOVIMAB
     Indication: COVID-19
     Route: 042
     Dates: start: 20220616, end: 20220616

REACTIONS (5)
  - Erythema [None]
  - Back pain [None]
  - Dyspnoea [None]
  - Oedema mouth [None]
  - Infusion related reaction [None]

NARRATIVE: CASE EVENT DATE: 20220616
